FAERS Safety Report 8508082-2 (Version None)
Quarter: 2012Q2

REPORT INFORMATION
  Report Type: 
  Country: None (occurrence: None)
  Receive Date: 20120405
  Receipt Date: 20090902
  Transmission Date: 20120825
  Serious: Yes (Hospitalization)
  Sender: FDA-Public Use
  Company Number: PHEH2009US10248

PATIENT
  Sex: Female

DRUGS (12)
  1. PROTONIX [Concomitant]
  2. ALPRAZOLAM [Concomitant]
  3. ADVAIR HFA [Concomitant]
  4. PROZAC [Concomitant]
  5. DIOVAN HCT [Concomitant]
  6. CALCIUM CARBONATE [Concomitant]
  7. PRAVASTATIN SODIUM [Concomitant]
  8. PREDNISOLONE [Concomitant]
  9. RECLAST [Suspect]
     Dosage: UNK, INFUSION
     Dates: start: 20090827, end: 20090827
  10. POTASSIUM CHLORIDE [Concomitant]
  11. LASIX [Concomitant]
  12. ATROPINE [Concomitant]

REACTIONS (1)
  - DYSPNOEA [None]
